FAERS Safety Report 15895415 (Version 1)
Quarter: 2019Q1

REPORT INFORMATION
  Report Type: Spontaneous
  Country: US (occurrence: US)
  Receive Date: 20190131
  Receipt Date: 20190131
  Transmission Date: 20190417
  Serious: No
  Sender: FDA-Public Use
  Company Number: US-BAYER-2019-020436

PATIENT
  Sex: Female

DRUGS (2)
  1. MIRENA [Suspect]
     Active Substance: LEVONORGESTREL
     Indication: UTERINE CANCER
     Dosage: 20 MCG/24HR, CONT
     Route: 015
  2. MIRENA [Suspect]
     Active Substance: LEVONORGESTREL
     Indication: UTERINE CANCER

REACTIONS (6)
  - Off label use [None]
  - Gastric disorder [None]
  - Palpitations [None]
  - Abdominal distension [None]
  - Abdominal pain upper [None]
  - Product use in unapproved indication [None]
